FAERS Safety Report 10535656 (Version 2)
Quarter: 2014Q4

REPORT INFORMATION
  Report Type: Spontaneous
  Country: US (occurrence: US)
  Receive Date: 20141022
  Receipt Date: 20141022
  Transmission Date: 20150529
  Serious: Yes (Other)
  Sender: FDA-Public Use
  Company Number: US-RECKITT BENCKISER PHARMACEUTICAL, INC-RB-58667-2013

PATIENT

DRUGS (7)
  1. NICOTINE. [Suspect]
     Active Substance: NICOTINE
     Dosage: MOTHER SMOKES 1/2 PACK CIGARETTES PER DAY
     Route: 063
     Dates: start: 20130912, end: 20130915
  2. SUBOXONE [Suspect]
     Active Substance: BUPRENORPHINE HYDROCHLORIDE\NALOXONE HYDROCHLORIDE
     Indication: DRUG DEPENDENCE
     Dosage: FILM FORMULATION
     Route: 064
     Dates: start: 20121203, end: 20130109
  3. NICOTINE. [Suspect]
     Active Substance: NICOTINE
     Indication: NICOTINE DEPENDENCE
     Dosage: MOTHER SMOKES 1/2 PACK CIGARETTES PER DAY
     Route: 064
     Dates: start: 20121128, end: 20130912
  4. SUBUTEX [Suspect]
     Active Substance: BUPRENORPHINE HYDROCHLORIDE
     Indication: DRUG DEPENDENCE
     Route: 064
     Dates: start: 20130110, end: 201305
  5. GENERIC BUPRENORPHINE [Suspect]
     Active Substance: BUPRENORPHINE
     Indication: DRUG DEPENDENCE
     Route: 064
     Dates: start: 201306, end: 20130912
  6. GENERIC BUPRENORPHINE [Suspect]
     Active Substance: BUPRENORPHINE
     Route: 063
     Dates: start: 20130912, end: 20130915
  7. SUBOXONE [Suspect]
     Active Substance: BUPRENORPHINE HYDROCHLORIDE\NALOXONE HYDROCHLORIDE
     Indication: DRUG DEPENDENCE
     Route: 064
     Dates: start: 201305, end: 201306

REACTIONS (5)
  - Drug withdrawal syndrome neonatal [Recovered/Resolved]
  - Foetal exposure during pregnancy [Recovered/Resolved]
  - Exposure during breast feeding [Recovered/Resolved]
  - Tremor [Recovered/Resolved]
  - Drug withdrawal syndrome neonatal [None]

NARRATIVE: CASE EVENT DATE: 20121203
